FAERS Safety Report 15850577 (Version 1)
Quarter: 2019Q1

REPORT INFORMATION
  Report Type: Spontaneous
  Country: US (occurrence: US)
  Receive Date: 20190121
  Receipt Date: 20190121
  Transmission Date: 20190417
  Serious: No
  Sender: FDA-Public Use
  Company Number: US-SA-2019SA015224

PATIENT
  Age: 23 Year
  Sex: Female

DRUGS (1)
  1. LOVENOX [Suspect]
     Active Substance: ENOXAPARIN SODIUM
     Indication: LUPUS PLEURISY
     Dosage: 90 MG, BID
     Route: 065

REACTIONS (1)
  - Exposure during pregnancy [Unknown]
